FAERS Safety Report 8859143 (Version 1)
Quarter: 2012Q4

REPORT INFORMATION
  Report Type: Spontaneous
  Country: US (occurrence: None)
  Receive Date: 20121024
  Receipt Date: 20121024
  Transmission Date: 20130627
  Serious: No
  Sender: FDA-Public Use
  Company Number: None

PATIENT
  Age: 51 Year
  Sex: Female
  Weight: 68.04 kg

DRUGS (4)
  1. LAMOTRIGINE [Suspect]
     Indication: SEIZURE
     Dosage: 150mg daily po
Duration: 4-5 moths
     Route: 048
     Dates: start: 20120601, end: 20121021
  2. LAMOTRIGINE [Suspect]
     Indication: BIPOLAR DISORDER
     Dosage: 150mg daily po
Duration: 4-5 moths
     Route: 048
     Dates: start: 20120601, end: 20121021
  3. LAMOTRIGINE [Suspect]
     Indication: DRUG INEFFECTIVE
     Dosage: 150mg daily po
Duration: 4-5 moths
     Route: 048
     Dates: start: 20120601, end: 20121021
  4. LAMICTAL [Suspect]
     Dosage: 150mg daily po
     Route: 048
     Dates: start: 20100227, end: 20120601

REACTIONS (4)
  - Affective disorder [None]
  - Condition aggravated [None]
  - Drug level fluctuating [None]
  - Product substitution issue [None]
